FAERS Safety Report 6533345-X (Version None)
Quarter: 2010Q1

REPORT INFORMATION
  Report Type: 
  Country: None (occurrence: None)
  Receive Date: 20100111
  Receipt Date: 20091228
  Transmission Date: 20100710
  Serious: Yes (Hospitalization)
  Sender: FDA-Public Use
  Company Number: B0614261A

PATIENT
  Sex: Female

DRUGS (6)
  1. AUGMENTIN '125' [Suspect]
     Indication: PERITONSILLAR ABSCESS
     Dosage: 250MG THREE TIMES PER DAY
     Route: 048
     Dates: start: 20091104
  2. RINDERON [Concomitant]
     Indication: PERITONSILLAR ABSCESS
     Dosage: .5MG THREE TIMES PER DAY
     Route: 048
     Dates: start: 20091104, end: 20091104
  3. ZANTAC [Concomitant]
     Dosage: 75MG TWICE PER DAY
     Route: 048
     Dates: start: 20091104
  4. RINDERON [Concomitant]
     Dosage: 1MG PER DAY
     Route: 048
     Dates: start: 20091105, end: 20091109
  5. PANSPORIN [Concomitant]
     Indication: PERITONSILLAR ABSCESS
     Dosage: 1G PER DAY
     Route: 042
     Dates: start: 20091104, end: 20091104
  6. SOLU-CORTEF [Concomitant]
     Indication: PERITONSILLAR ABSCESS
     Route: 042
     Dates: start: 20091104, end: 20091104

REACTIONS (1)
  - DRUG ERUPTION [None]
